FAERS Safety Report 8951325 (Version 2)
Quarter: 2013Q1

REPORT INFORMATION
  Report Type: Spontaneous
  Country: US (occurrence: None)
  Receive Date: 20121107
  Receipt Date: 20121211
  Transmission Date: 20140127
  Serious: Yes (Hospitalization, Other)
  Sender: FDA-Public Use
  Company Number: 2012PROUSA02197

PATIENT
  Age: 65 Year
  Sex: Male

DRUGS (1)
  1. PROVENGE (SIPULEUCEL-T) SUSPENSION, 250 ML [Suspect]
     Indication: PROSTATE CANCER METASTATIC
     Route: 042
     Dates: start: 20121015, end: 20121015

REACTIONS (5)
  - Mental status changes [None]
  - Malaise [None]
  - Headache [None]
  - Metastases to meninges [None]
  - Prostate cancer [None]
